FAERS Safety Report 8917128 (Version 1)
Quarter: 2012Q4

REPORT INFORMATION
  Report Type: 
  Country: US (occurrence: US)
  Receive Date: 20121120
  Receipt Date: 20121120
  Transmission Date: 20130627
  Serious: No
  Sender: FDA-Public Use
  Company Number: US-ALLERGAN-1211036US

PATIENT
  Age: 72 Year
  Sex: Female

DRUGS (3)
  1. LASTACAFT [Suspect]
     Indication: PINKEYE
     Dosage: 2 Gtt, UNK
     Route: 047
     Dates: start: 20120713
  2. TOBRADEX [Concomitant]
     Indication: PINKEYE
     Dosage: UNK
     Route: 047
  3. ZIRGAN [Concomitant]
     Indication: PINKEYE
     Dosage: UNK
     Route: 047

REACTIONS (16)
  - Rash erythematous [Unknown]
  - Swelling face [Unknown]
  - Face injury [Unknown]
  - Skin exfoliation [Unknown]
  - Lacrimation increased [Unknown]
  - Rhinorrhoea [Unknown]
  - Eyelid ptosis [Unknown]
  - Visual acuity reduced [Unknown]
  - Off label use [Unknown]
  - Eyelid oedema [Unknown]
  - Eye swelling [Unknown]
  - Erythema [Unknown]
  - Hypersensitivity [Unknown]
  - Eye irritation [Unknown]
  - Eye pruritus [Unknown]
  - Scleral hyperaemia [Unknown]
